FAERS Safety Report 5709194-9 (Version None)
Quarter: 2008Q2

REPORT INFORMATION
  Report Type: 
  Country: None (occurrence: None)
  Receive Date: 20080418
  Receipt Date: 20080408
  Transmission Date: 20081010
  Serious: Yes (Other)
  Sender: FDA-Public Use
  Company Number: US-JNJFOC-20080402420

PATIENT
  Sex: Male

DRUGS (8)
  1. INFLIXIMAB [Suspect]
     Route: 042
  2. INFLIXIMAB [Suspect]
     Indication: CROHN'S DISEASE
     Route: 042
  3. 5-ASA [Concomitant]
     Dosage: ROUTE: ORAL AND RECTAL
  4. ANTIBIOTICS [Concomitant]
  5. PROBIOTICS [Concomitant]
  6. CORTICOSTEROIDS [Concomitant]
  7. METHOTREXATE [Concomitant]
  8. MERCAPTOPURINE [Concomitant]

REACTIONS (1)
  - MALIGNANT MELANOMA [None]
